FAERS Safety Report 24339873 (Version 5)
Quarter: 2025Q1

REPORT INFORMATION
  Report Type: Spontaneous
  Country: US (occurrence: US)
  Receive Date: 20240919
  Receipt Date: 20250226
  Transmission Date: 20250408
  Serious: Yes (Other)
  Sender: PFIZER
  Company Number: US-PFIZER INC-202400258418

PATIENT
  Age: 30 Year
  Sex: Male

DRUGS (6)
  1. XELJANZ XR [Suspect]
     Active Substance: TOFACITINIB CITRATE
     Indication: Colitis ulcerative
     Dosage: 22 MG, DAILY
     Route: 048
  2. XELJANZ XR [Suspect]
     Active Substance: TOFACITINIB CITRATE
     Dosage: 22 MG PER DAY ORALLY
     Route: 048
  3. XELJANZ XR [Suspect]
     Active Substance: TOFACITINIB CITRATE
     Dosage: 11 MG, DAILY
     Route: 048
     Dates: end: 2024
  4. TYLENOL PM EXTRA STRENGTH [Concomitant]
     Active Substance: ACETAMINOPHEN\DIPHENHYDRAMINE HYDROCHLORIDE
  5. VITAMIN B-1 [THIAMINE HYDROCHLORIDE] [Concomitant]
  6. DICYCLOMINE HYDROCHLORIDE [Concomitant]
     Active Substance: DICYCLOMINE HYDROCHLORIDE

REACTIONS (16)
  - Loss of consciousness [Unknown]
  - Condition aggravated [Not Recovered/Not Resolved]
  - Rash pruritic [Recovered/Resolved]
  - Dyspnoea [Not Recovered/Not Resolved]
  - Eye swelling [Recovering/Resolving]
  - Dizziness [Unknown]
  - Chest pain [Unknown]
  - Muscle spasms [Unknown]
  - Pollakiuria [Not Recovered/Not Resolved]
  - Dehydration [Not Recovered/Not Resolved]
  - Fatigue [Not Recovered/Not Resolved]
  - Musculoskeletal stiffness [Not Recovered/Not Resolved]
  - Brain fog [Not Recovered/Not Resolved]
  - Pain [Not Recovered/Not Resolved]
  - Rash [Recovering/Resolving]
  - Pruritus [Recovering/Resolving]

NARRATIVE: CASE EVENT DATE: 20230101
